FAERS Safety Report 9943711 (Version 2)
Quarter: 2014Q1

REPORT INFORMATION
  Report Type: Spontaneous
  Country: US (occurrence: US)
  Receive Date: 20140303
  Receipt Date: 20140303
  Transmission Date: 20141002
  Serious: Yes (Hospitalization, Other)
  Sender: FDA-Public Use
  Company Number: US-ABBVIE-13P-163-1045600-00

PATIENT
  Age: 61 Year
  Sex: Female
  Weight: 56.3 kg

DRUGS (3)
  1. HUMIRA [Suspect]
     Indication: RHEUMATOID ARTHRITIS
     Dates: start: 201006
  2. CELEBREX [Suspect]
     Indication: ARTHRALGIA
     Route: 048
     Dates: start: 2003, end: 2009
  3. CELEBREX [Suspect]
     Route: 048
     Dates: start: 2009

REACTIONS (7)
  - Localised infection [Unknown]
  - Musculoskeletal discomfort [Unknown]
  - Back pain [Unknown]
  - Pain in extremity [Unknown]
  - Pain in extremity [Unknown]
  - Pain in extremity [Recovering/Resolving]
  - Cellulitis [Recovering/Resolving]
